FAERS Safety Report 15648045 (Version 1)
Quarter: 2018Q4

REPORT INFORMATION
  Report Type: Spontaneous
  Country: PL (occurrence: PL)
  Receive Date: 20181122
  Receipt Date: 20181122
  Transmission Date: 20190205
  Serious: Yes (Other)
  Sender: FDA-Public Use
  Company Number: PL-REGENERON PHARMACEUTICALS, INC.-2018-45030

PATIENT

DRUGS (2)
  1. EYLEA [Suspect]
     Active Substance: AFLIBERCEPT
     Indication: NEOVASCULAR AGE-RELATED MACULAR DEGENERATION
     Dosage: TOTAL EYLEA DOSE WAS NOT REPORTED
     Dates: start: 20180205
  2. EYLEA [Suspect]
     Active Substance: AFLIBERCEPT
     Dosage: BETWEEN THE 6TH AND 7TH DOSE, LAST DOSE PRIOR THE EVENT
     Dates: start: 20181029, end: 20181029

REACTIONS (2)
  - Drug ineffective [Unknown]
  - Retinal haemorrhage [Unknown]
